APPROVED DRUG PRODUCT: QUALAQUIN
Active Ingredient: QUININE SULFATE
Strength: 324MG **Federal Register determination that product was not discontinued or withdrawn for safety or effectiveness reasons**
Dosage Form/Route: CAPSULE;ORAL
Application: N021799 | Product #001
Applicant: SUN PHARMACEUTICAL INDUSTRIES INC
Approved: Aug 12, 2005 | RLD: Yes | RS: No | Type: DISCN